FAERS Safety Report 6466353-8 (Version None)
Quarter: 2009Q4

REPORT INFORMATION
  Report Type: 
  Country: None (occurrence: None)
  Receive Date: 20091118
  Receipt Date: 20090807
  Transmission Date: 20100525
  Serious: Yes (Hospitalization)
  Sender: FDA-Public Use
  Company Number: 2009BI019696

PATIENT
  Age: 36 Year
  Sex: Female

DRUGS (1)
  1. TYSABRI [Suspect]
     Indication: MULTIPLE SCLEROSIS
     Dosage: 300 MG; QM; IV
     Route: 042
     Dates: start: 20081016

REACTIONS (7)
  - FEELING ABNORMAL [None]
  - HERPES ZOSTER [None]
  - HYPERACUSIS [None]
  - HYPOVITAMINOSIS [None]
  - LOSS OF CONSCIOUSNESS [None]
  - PHOTOSENSITIVITY REACTION [None]
  - TRIGEMINAL NEURALGIA [None]
